FAERS Safety Report 7587115-4 (Version None)
Quarter: 2011Q3

REPORT INFORMATION
  Report Type: 
  Country: None (occurrence: None)
  Receive Date: 20110701
  Receipt Date: 20110627
  Transmission Date: 20111222
  Serious: Yes (Death, Hospitalization, Other)
  Sender: FDA-Public Use
  Company Number: PHHY2011CA41662

PATIENT
  Age: 51 Year
  Sex: Male

DRUGS (2)
  1. ESOMEPRAZOLE MAGNESIUM [Concomitant]
  2. CLOZAPINE [Suspect]

REACTIONS (9)
  - CARDIAC ARREST [None]
  - OESOPHAGEAL CANDIDIASIS [None]
  - OESOPHAGEAL ULCER HAEMORRHAGE [None]
  - HEPATIC FAILURE [None]
  - OESOPHAGEAL ULCER [None]
  - HEPATIC ENCEPHALOPATHY [None]
  - HEPATITIS [None]
  - MALAISE [None]
  - JAUNDICE [None]
